FAERS Safety Report 15609203 (Version 2)
Quarter: 2018Q4

REPORT INFORMATION
  Report Type: Other
  Country: AU (occurrence: AU)
  Receive Date: 20181112
  Receipt Date: 20181112
  Transmission Date: 20190205
  Serious: Yes (Death)
  Sender: FDA-Public Use
  Company Number: AU-LEADING PHARMA, LLC-2058748

PATIENT

DRUGS (1)
  1. FUROSEMIDE. [Suspect]
     Active Substance: FUROSEMIDE
     Indication: POLYURIA

REACTIONS (1)
  - Arrhythmia [Fatal]
